FAERS Safety Report 8733854 (Version 3)
Quarter: 2012Q4

REPORT INFORMATION
  Report Type: 
  Country: JP (occurrence: JP)
  Receive Date: 20120821
  Receipt Date: 20120927
  Transmission Date: 20130627
  Serious: Yes (Other)
  Sender: FDA-Public Use
  Company Number: JP-ASTELLAS-2012US007083

PATIENT
  Age: 75 Year
  Sex: Male

DRUGS (4)
  1. ADENOSCAN [Suspect]
     Indication: SCAN MYOCARDIAL PERFUSION
     Dosage: 39.6 mg, Total Dose
     Route: 042
     Dates: start: 20120306, end: 20120306
  2. MAINTATE [Concomitant]
     Indication: VENTRICULAR EXTRASYSTOLES
     Dosage: 2.5 mg, UID/QD
     Route: 048
     Dates: start: 20120228
  3. LASIX                              /00032601/ [Concomitant]
     Indication: URINE OUTPUT DECREASED
     Dosage: 20 mg, UID/QD
     Route: 048
     Dates: start: 20120301
  4. ALDACTONE                          /00006201/ [Concomitant]
     Indication: URINE OUTPUT DECREASED
     Dosage: 25 mg, UID/QD
     Route: 048
     Dates: start: 20120301

REACTIONS (4)
  - Dyspnoea [Recovered/Resolved]
  - Wheezing [None]
  - Oxygen saturation decreased [None]
  - Anaphylactic reaction [None]
